FAERS Safety Report 5309579-9 (Version None)
Quarter: 2007Q2

REPORT INFORMATION
  Report Type: 
  Country: None (occurrence: None)
  Receive Date: 20070424
  Receipt Date: 20070411
  Transmission Date: 20071010
  Serious: Yes (Hospitalization)
  Sender: FDA-Public Use
  Company Number: RENA-11901

PATIENT
  Age: 54 Year
  Sex: Female
  Weight: 71.6 kg

DRUGS (9)
  1. RENAGEL [Suspect]
     Indication: HYPERPHOSPHATAEMIA
     Dosage: 1.6 G TID PO
     Route: 048
     Dates: start: 20060413
  2. MINOXIDIL [Concomitant]
  3. LISINOPRIL [Concomitant]
  4. PROCARDIA [Concomitant]
  5. TOPROL-XL [Concomitant]
  6. CLONIDINE [Concomitant]
  7. ZEMPLAR [Concomitant]
  8. EPOGEN [Concomitant]
  9. HEPARIN [Concomitant]

REACTIONS (6)
  - BLOOD ALKALINE PHOSPHATASE INCREASED [None]
  - BLOOD CALCIUM INCREASED [None]
  - BLOOD CREATININE INCREASED [None]
  - FAECALOMA [None]
  - FLUID INTAKE REDUCED [None]
  - VASCULAR CALCIFICATION [None]
